FAERS Safety Report 5554288-4 (Version None)
Quarter: 2007Q4

REPORT INFORMATION
  Report Type: 
  Country: None (occurrence: None)
  Receive Date: 20071213
  Receipt Date: 20071205
  Transmission Date: 20080405
  Serious: Yes (Hospitalization)
  Sender: FDA-Public Use
  Company Number: B0498982A

PATIENT
  Age: 76 Year
  Sex: Male

DRUGS (11)
  1. FORTUM [Suspect]
     Indication: STAPHYLOCOCCAL MEDIASTINITIS
     Route: 042
     Dates: start: 20070617, end: 20070702
  2. CIFLOX [Suspect]
     Indication: STAPHYLOCOCCAL MEDIASTINITIS
     Dosage: 500MG THREE TIMES PER DAY
     Route: 050
     Dates: start: 20070614
  3. VANCOMYCIN [Suspect]
     Indication: STAPHYLOCOCCAL MEDIASTINITIS
     Route: 042
     Dates: start: 20070528, end: 20070702
  4. DALACINE [Suspect]
     Indication: STAPHYLOCOCCAL MEDIASTINITIS
     Dosage: 600MG TWICE PER DAY
     Route: 042
     Dates: start: 20070528
  5. APROVEL [Concomitant]
     Route: 065
  6. ESIDRIX [Concomitant]
     Route: 065
  7. LASIX [Concomitant]
     Route: 065
  8. LOGIMAX [Concomitant]
     Route: 065
  9. TAHOR [Concomitant]
     Route: 065
  10. RAMIPRIL [Concomitant]
     Route: 065
  11. ASPEGIC 1000 [Concomitant]
     Route: 065

REACTIONS (4)
  - GRAND MAL CONVULSION [None]
  - MULTIPLE DRUG OVERDOSE [None]
  - PLEURAL EFFUSION [None]
  - RESPIRATORY DISORDER [None]
